FAERS Safety Report 20826927 (Version 1)
Quarter: 2022Q2

REPORT INFORMATION
  Report Type: Report from Study
  Country: CN (occurrence: CN)
  Receive Date: 20220513
  Receipt Date: 20220513
  Transmission Date: 20220721
  Serious: Yes (Hospitalization)
  Sender: FDA-Public Use
  Company Number: CN-Merck Healthcare KGaA-9320083

PATIENT
  Age: 60 Year
  Sex: Female
  Weight: 44 kg

DRUGS (8)
  1. CETUXIMAB [Suspect]
     Active Substance: CETUXIMAB
     Indication: Colorectal cancer metastatic
     Dosage: 536 MG, UNKNOWN
     Route: 041
     Dates: start: 20220218
  2. CETUXIMAB [Suspect]
     Active Substance: CETUXIMAB
     Dosage: 335 MG, UNKNOWN
     Route: 041
     Dates: start: 20220415
  3. OXALIPLATIN [Concomitant]
     Active Substance: OXALIPLATIN
     Indication: Colorectal cancer metastatic
     Dosage: 114 MG, UNKNOWN
     Route: 041
     Dates: start: 20220218
  4. OXALIPLATIN [Concomitant]
     Active Substance: OXALIPLATIN
     Dosage: 114 MG, UNKNOWN
     Route: 041
     Dates: start: 20220415
  5. LEUCOVORIN CALCIUM [Concomitant]
     Active Substance: LEUCOVORIN CALCIUM
     Indication: Colorectal cancer metastatic
     Dosage: 536 MG, UNKNOWN
     Route: 041
     Dates: start: 20220218
  6. LEUCOVORIN CALCIUM [Concomitant]
     Active Substance: LEUCOVORIN CALCIUM
     Dosage: 536 MG, UNKNOWN
     Route: 041
     Dates: start: 20220415
  7. FLUOROURACIL [Concomitant]
     Active Substance: FLUOROURACIL
     Indication: Colorectal cancer metastatic
     Dosage: 3752 MG, UNKNOWN
     Route: 041
     Dates: start: 20220218
  8. FLUOROURACIL [Concomitant]
     Active Substance: FLUOROURACIL
     Dosage: 3752 MG, UNKNOWN
     Route: 041
     Dates: start: 20220415

REACTIONS (3)
  - Platelet count decreased [Recovered/Resolved]
  - White blood cell count decreased [Recovered/Resolved]
  - Neutrophil count decreased [Recovered/Resolved]

NARRATIVE: CASE EVENT DATE: 20220422
